FAERS Safety Report 5018503-8 (Version None)
Quarter: 2006Q2

REPORT INFORMATION
  Report Type: 
  Country: None (occurrence: None)
  Receive Date: 20060426
  Receipt Date: 20050927
  Transmission Date: 20061013
  Serious: Yes (Hospitalization)
  Sender: FDA-Public Use
  Company Number: US152110

PATIENT
  Age: 14 Year
  Sex: Male
  Weight: 70.8 kg

DRUGS (2)
  1. SENSIPAR [Suspect]
     Indication: HYPERPARATHYROIDISM SECONDARY
     Dosage: 30 MG, 1 IN 1 DAYS,PO
     Route: 048
     Dates: start: 20050810
  2. CALCITRIOL [Concomitant]

REACTIONS (1)
  - CONVULSION [None]
